FAERS Safety Report 9190827 (Version 1)
Quarter: 2013Q1

REPORT INFORMATION
  Report Type: Spontaneous
  Country: BR (occurrence: BR)
  Receive Date: 20130326
  Receipt Date: 20130326
  Transmission Date: 20140127
  Serious: Yes (Hospitalization, Other)
  Sender: FDA-Public Use
  Company Number: BR-009507513-1303BRA012108

PATIENT
  Age: 21 Year
  Sex: Female
  Weight: 58 kg

DRUGS (2)
  1. NUVARING [Suspect]
     Indication: CONTRACEPTION
     Dosage: UNK
     Route: 067
     Dates: start: 2011, end: 201211
  2. NUVARING [Suspect]
     Dosage: UNK
     Route: 067
     Dates: start: 20130321

REACTIONS (9)
  - Ectopic pregnancy [Recovered/Resolved]
  - Abortion spontaneous [Recovered/Resolved]
  - Uterine dilation and curettage [Recovered/Resolved]
  - Fallopian tube operation [Recovered/Resolved]
  - Haemorrhage [Unknown]
  - Anaemia [Not Recovered/Not Resolved]
  - Unintended pregnancy [Recovered/Resolved]
  - Metrorrhagia [Unknown]
  - Nausea [Recovered/Resolved]
